FAERS Safety Report 7494388-5 (Version None)
Quarter: 2011Q2

REPORT INFORMATION
  Report Type: 
  Country: None (occurrence: None)
  Receive Date: 20110520
  Receipt Date: 20110518
  Transmission Date: 20111010
  Serious: Yes (Other)
  Sender: FDA-Public Use
  Company Number: US-PFIZER INC-2011107272

PATIENT
  Age: 51 Year
  Sex: Female

DRUGS (2)
  1. BACTRIM [Concomitant]
     Dosage: UNK
  2. LYRICA [Suspect]
     Dosage: 75 MG, 2X/DAY
     Route: 048
     Dates: start: 20100101

REACTIONS (5)
  - DERMATITIS BULLOUS [None]
  - SYSTEMIC LUPUS ERYTHEMATOSUS [None]
  - BLOOD BLISTER [None]
  - OSTEOARTHRITIS [None]
  - SCAR [None]
